FAERS Safety Report 11861031 (Version 3)
Quarter: 2016Q1

REPORT INFORMATION
  Report Type: Spontaneous
  Country: JP (occurrence: JP)
  Receive Date: 20151222
  Receipt Date: 20160212
  Transmission Date: 20160526
  Serious: Yes (Other)
  Sender: FDA-Public Use
  Company Number: JP-GILEAD-2015-0188135

PATIENT
  Age: 77 Year
  Sex: Female

DRUGS (5)
  1. AMLODIN [Concomitant]
     Active Substance: AMLODIPINE BESYLATE
     Dosage: 2.5 UNK, UNK
     Route: 048
     Dates: start: 20091031
  2. LOCHOL                             /00638501/ [Concomitant]
     Active Substance: FLUVASTATIN SODIUM
     Dosage: 30 UNK, UNK
     Route: 048
     Dates: start: 20081011
  3. REBETOL [Suspect]
     Active Substance: RIBAVIRIN
     Indication: CHRONIC HEPATITIS
     Dosage: 600 MG, UNK
     Route: 048
     Dates: start: 20151017, end: 20151128
  4. AVAPRO [Concomitant]
     Active Substance: IRBESARTAN
     Dosage: 100 UNK, UNK
     Route: 048
     Dates: start: 20090820
  5. SOVALDI [Suspect]
     Active Substance: SOFOSBUVIR
     Indication: CHRONIC HEPATITIS
     Dosage: 400 MG, UNK
     Route: 048
     Dates: start: 20151017, end: 20151128

REACTIONS (2)
  - Cardiac failure [Recovered/Resolved]
  - Atrial fibrillation [Recovered/Resolved]

NARRATIVE: CASE EVENT DATE: 20151128
